FAERS Safety Report 9179915 (Version 1)
Quarter: 2012Q4

REPORT INFORMATION
  Report Type: 
  Country: AT (occurrence: AT)
  Receive Date: 20121029
  Receipt Date: 20121029
  Transmission Date: 20130627
  Serious: Yes (Other)
  Sender: FDA-Public Use
  Company Number: AT-MUTUAL PHARMACEUTICAL COMPANY, INC.-IBPF20120004

PATIENT
  Age: 61 Year
  Sex: Female

DRUGS (1)
  1. IBUPROFEN [Suspect]
     Indication: LUMBAR PAIN
     Route: 065

REACTIONS (2)
  - Optic neuritis [None]
  - Drug administration error [None]
